FAERS Safety Report 11688869 (Version 5)
Quarter: 2016Q1

REPORT INFORMATION
  Report Type: Spontaneous
  Country: DE (occurrence: DE)
  Receive Date: 20151102
  Receipt Date: 20160119
  Transmission Date: 20160525
  Serious: Yes (Hospitalization, Other)
  Sender: FDA-Public Use
  Company Number: DE-PFIZER INC-2015355783

PATIENT
  Age: 86 Year
  Sex: Male
  Weight: 110 kg

DRUGS (4)
  1. LYRICA [Suspect]
     Active Substance: PREGABALIN
     Indication: OPHTHALMIC HERPES ZOSTER
     Dosage: HIGH DOSE
  2. LYRICA [Suspect]
     Active Substance: PREGABALIN
     Dosage: 425 MG (200-0-225), DAILY
  3. ANAESTHESULF LOTIO [Concomitant]
     Indication: OPHTHALMIC HERPES ZOSTER
  4. ACICLOVIR [Concomitant]
     Active Substance: ACYCLOVIR
     Indication: OPHTHALMIC HERPES ZOSTER

REACTIONS (13)
  - Oedema [Not Recovered/Not Resolved]
  - Dermatitis bullous [Unknown]
  - Asthma [Unknown]
  - Skin lesion [Not Recovered/Not Resolved]
  - Chronic obstructive pulmonary disease [Unknown]
  - Drug effect incomplete [Unknown]
  - Disease recurrence [Not Recovered/Not Resolved]
  - Peripheral swelling [Not Recovered/Not Resolved]
  - Blister [Not Recovered/Not Resolved]
  - Oedema peripheral [Not Recovered/Not Resolved]
  - Pemphigoid [Unknown]
  - Thrombosis [Not Recovered/Not Resolved]
  - Dermatosis [Unknown]

NARRATIVE: CASE EVENT DATE: 201508
